FAERS Safety Report 15935714 (Version 2)
Quarter: 2019Q1

REPORT INFORMATION
  Report Type: Spontaneous
  Country: US (occurrence: US)
  Receive Date: 20190208
  Receipt Date: 20190222
  Transmission Date: 20190417
  Serious: Yes (Congenital Anomaly)
  Sender: FDA-Public Use
  Company Number: US-JNJFOC-20190141645

PATIENT
  Age: 0 Year

DRUGS (4)
  1. ZYRTEC [Suspect]
     Active Substance: CETIRIZINE HYDROCHLORIDE
     Indication: SEASONAL ALLERGY
     Route: 064
     Dates: start: 2013
  2. PRENATAL VITAMINS [Concomitant]
     Active Substance: VITAMINS
     Indication: VITAMIN SUPPLEMENTATION
     Route: 064
     Dates: start: 201704
  3. NASACORT [Concomitant]
     Active Substance: TRIAMCINOLONE ACETONIDE
     Indication: SEASONAL ALLERGY
     Route: 064
     Dates: start: 2015
  4. ZYRTEC [Suspect]
     Active Substance: CETIRIZINE HYDROCHLORIDE
     Route: 064

REACTIONS (2)
  - Foetal exposure during pregnancy [Unknown]
  - Cerebral ventricle dilatation [Not Recovered/Not Resolved]

NARRATIVE: CASE EVENT DATE: 20171122
